FAERS Safety Report 18973716 (Version 1)
Quarter: 2021Q1

REPORT INFORMATION
  Report Type: Spontaneous
  Country: DE (occurrence: DE)
  Receive Date: 20210305
  Receipt Date: 20210305
  Transmission Date: 20210420
  Serious: Yes (Hospitalization)
  Sender: FDA-Public Use
  Company Number: NVSC2021DE041801

PATIENT
  Age: 40 Year
  Sex: Male
  Weight: 75 kg

DRUGS (4)
  1. ONDANSETRON [Concomitant]
     Active Substance: ONDANSETRON
     Indication: PRODUCT USED FOR UNKNOWN INDICATION
     Dosage: IN 100ML GLUCOSE 5%
     Route: 065
     Dates: start: 20210111
  2. DEXAMETHASONE. [Concomitant]
     Active Substance: DEXAMETHASONE
     Indication: PRODUCT USED FOR UNKNOWN INDICATION
     Dosage: IN 100ML GLUCOSE 5%
     Route: 065
     Dates: start: 20210111
  3. IRINOTECAN KABI [Concomitant]
     Active Substance: IRINOTECAN
     Indication: COLON CANCER
     Dosage: 320 MG, CYCLIC (5. ZYKLUS (FOLFIRI) IN 250ML GLUCOSE; APPLIKATION 60 MINUTEN)
     Route: 042
     Dates: start: 20210111
  4. OXALIPLATIN. [Suspect]
     Active Substance: OXALIPLATIN
     Indication: COLON CANCER
     Dosage: 160 MG, CYCLIC (5. ZYKLUS (FOLFIRI) IN 250ML GLUCOSE 5%; CA. 2,5ML/MIN; INFUSIONSDAUER 2 STUNDEN)
     Route: 042
     Dates: start: 20210111

REACTIONS (4)
  - Chills [Recovered/Resolved]
  - Pyrexia [Recovered/Resolved]
  - Infusion related reaction [Recovered/Resolved]
  - C-reactive protein increased [Recovered/Resolved]

NARRATIVE: CASE EVENT DATE: 20210112
